FAERS Safety Report 9550734 (Version 4)
Quarter: 2019Q4

REPORT INFORMATION
  Report Type: Report from Study
  Country: US (occurrence: US)
  Receive Date: 20130924
  Receipt Date: 20191015
  Transmission Date: 20200122
  Serious: Yes (Death, Disabling, Other)
  Sender: FDA-Public Use
  Company Number: US-SANOFI-AVENTIS-2013SA022339

PATIENT
  Age: 64 Year
  Sex: Male

DRUGS (1)
  1. TERIFLUNOMIDE. [Suspect]
     Active Substance: TERIFLUNOMIDE
     Indication: MULTIPLE SCLEROSIS
     Dosage: 14 MG,QD
     Route: 048
     Dates: start: 20130213, end: 20190731

REACTIONS (4)
  - Disease complication [Fatal]
  - Pain in extremity [Not Recovered/Not Resolved]
  - Wheelchair user [Unknown]
  - Diarrhoea [Recovering/Resolving]

NARRATIVE: CASE EVENT DATE: 20130225
